FAERS Safety Report 18174181 (Version 1)
Quarter: 2020Q3

REPORT INFORMATION
  Report Type: Spontaneous
  Country: US (occurrence: US)
  Receive Date: 20200819
  Receipt Date: 20200819
  Transmission Date: 20201103
  Serious: No
  Sender: FDA-Public Use
  Company Number: None

PATIENT
  Sex: Female

DRUGS (1)
  1. PROGESTERONE/OIL 50MG/ML AUROMEDICAS PHARMA [Suspect]
     Active Substance: PROGESTERONE
     Indication: INFERTILITY FEMALE
     Dosage: ?          OTHER FREQUENCY:EVERY MORNING ;?
     Route: 030
     Dates: start: 20200701

REACTIONS (1)
  - Urticaria [None]
